FAERS Safety Report 6921365-2 (Version None)
Quarter: 2010Q3

REPORT INFORMATION
  Report Type: 
  Country: None (occurrence: None)
  Receive Date: 20100812
  Receipt Date: 20100720
  Transmission Date: 20110219
  Serious: Yes (Other)
  Sender: FDA-Public Use
  Company Number: GXKR2010US08784

PATIENT
  Age: 28 Year
  Sex: Female

DRUGS (6)
  1. CITALOPRAM HYDROBROMIDE [Suspect]
     Indication: DEPRESSION
     Route: 065
  2. SCOPOLAMINE (NGX) [Suspect]
     Indication: PROPHYLAXIS OF NAUSEA AND VOMITING
     Dosage: UNK
     Route: 062
  3. PROPOFOL [Concomitant]
     Indication: ANAESTHESIA
     Route: 042
  4. MIDAZOLAM HCL [Concomitant]
     Indication: NERVE BLOCK
  5. DEXAMETHASONE [Concomitant]
  6. ONDANSETRON [Concomitant]

REACTIONS (4)
  - ANTICHOLINERGIC SYNDROME [None]
  - MYDRIASIS [None]
  - TACHYCARDIA [None]
  - UNRESPONSIVE TO STIMULI [None]
